FAERS Safety Report 4662922-6 (Version None)
Quarter: 2005Q2

REPORT INFORMATION
  Report Type: 
  Country: None (occurrence: None)
  Receive Date: 20050512
  Receipt Date: 20050422
  Transmission Date: 20051028
  Serious: Yes (Hospitalization, Other)
  Sender: FDA-Public Use
  Company Number: USA041183004

PATIENT
  Age: 77 Year
  Sex: Female
  Weight: 68 kg

DRUGS (7)
  1. FORTEO [Suspect]
     Indication: OSTEOPOROSIS
     Dosage: 20 UG/1 DAY
     Dates: start: 20041019, end: 20041107
  2. PREDNISONE [Concomitant]
  3. SYNTHROID [Concomitant]
  4. DILTIAZEM [Concomitant]
  5. PROPRANOLOL [Concomitant]
  6. CALCIUM PLUS D [Concomitant]
  7. NITROGLYCERIN [Concomitant]

REACTIONS (13)
  - ARTHROPATHY [None]
  - DISLOCATION OF JOINT PROSTHESIS [None]
  - FALL [None]
  - FOOT FRACTURE [None]
  - HAND FRACTURE [None]
  - HIP FRACTURE [None]
  - INJECTION SITE HAEMORRHAGE [None]
  - INJECTION SITE REACTION [None]
  - PHARMACEUTICAL PRODUCT COMPLAINT [None]
  - SCAB [None]
  - SCRATCH [None]
  - SKIN DISORDER [None]
  - WRONG TECHNIQUE IN DRUG USAGE PROCESS [None]
